FAERS Safety Report 19394076 (Version 1)
Quarter: 2021Q2

REPORT INFORMATION
  Report Type: Report from Study
  Country: US (occurrence: US)
  Receive Date: 20210609
  Receipt Date: 20210609
  Transmission Date: 20210717
  Serious: Yes (Other)
  Sender: FDA-Public Use
  Company Number: US-EMD SERONO-9213809

PATIENT
  Age: 45 Year
  Sex: Female

DRUGS (1)
  1. MAVENCLAD [Suspect]
     Active Substance: CLADRIBINE
     Indication: MULTIPLE SCLEROSIS
     Dosage: YEAR ONE THERAPY
     Route: 048
     Dates: start: 20200519

REACTIONS (8)
  - Vulvovaginal mycotic infection [Recovered/Resolved]
  - Fatigue [Unknown]
  - Herpes zoster [Unknown]
  - Rash vesicular [Recovering/Resolving]
  - Perineal infection [Recovered/Resolved]
  - Dermatitis [Recovering/Resolving]
  - Rash pruritic [Recovering/Resolving]
  - Urinary tract infection [Unknown]

NARRATIVE: CASE EVENT DATE: 2020
